FAERS Safety Report 6785986-2 (Version None)
Quarter: 2010Q2

REPORT INFORMATION
  Report Type: 
  Country: None (occurrence: None)
  Receive Date: 20100623
  Receipt Date: 20100611
  Transmission Date: 20101027
  Serious: Yes (Hospitalization)
  Sender: FDA-Public Use
  Company Number: AU-BAYER-201028391GPV

PATIENT
  Age: 67 Year
  Sex: Male
  Weight: 65 kg

DRUGS (4)
  1. SORAFENIB [Suspect]
     Indication: RENAL CELL CARCINOMA
     Dosage: TOTAL DAILY DOSE: 800 MG  UNIT DOSE: 200 MG
     Route: 048
     Dates: start: 20100519, end: 20100611
  2. ALLOPURINOL [Concomitant]
     Indication: GOUT
     Route: 048
  3. FENTANYL-75 [Concomitant]
     Indication: PAIN
     Route: 062
  4. ENDONE [Concomitant]
     Indication: PAIN
     Route: 048

REACTIONS (1)
  - SEPSIS [None]
